FAERS Safety Report 20328573 (Version 1)
Quarter: 2022Q1

REPORT INFORMATION
  Report Type: Spontaneous
  Country: US (occurrence: None)
  Receive Date: 20220112
  Receipt Date: 20220112
  Transmission Date: 20220423
  Serious: No
  Sender: FDA-Public Use
  Company Number: None

PATIENT
  Sex: Female

DRUGS (1)
  1. OTEZLA [Suspect]
     Active Substance: APREMILAST
     Indication: Arthropathy
     Dosage: 10/20/30MG  AS DIRECTED PO?
     Route: 048
     Dates: start: 20211217

REACTIONS (4)
  - Headache [None]
  - Vomiting [None]
  - Tremor [None]
  - Diarrhoea [None]
